FAERS Safety Report 13297632 (Version 2)
Quarter: 2018Q1

REPORT INFORMATION
  Report Type: Spontaneous
  Country: US (occurrence: US)
  Receive Date: 20170306
  Receipt Date: 20180126
  Transmission Date: 20180508
  Serious: Yes (Other)
  Sender: FDA-Public Use
  Company Number: US-PFIZER INC-2017090083

PATIENT
  Sex: Female
  Weight: 58.97 kg

DRUGS (3)
  1. LYRICA [Suspect]
     Active Substance: PREGABALIN
     Indication: FIBROMYALGIA
     Dosage: 150 MG, TWICE DAILY
  2. LYRICA [Suspect]
     Active Substance: PREGABALIN
     Indication: NEUROPATHY PERIPHERAL
  3. FENTANYL. [Concomitant]
     Active Substance: FENTANYL
     Indication: PAIN
     Dosage: 50 UG (1 PATCH APPLIED TO HER ARM EVERY 48 HOURS)
     Dates: start: 2008, end: 201710

REACTIONS (4)
  - Cognitive disorder [Unknown]
  - Cerebrovascular accident [Recovered/Resolved with Sequelae]
  - Memory impairment [Unknown]
  - Neuralgia [Not Recovered/Not Resolved]
